FAERS Safety Report 23832388 (Version 2)
Quarter: 2025Q3

REPORT INFORMATION
  Report Type: Spontaneous
  Country: US (occurrence: US)
  Receive Date: 20240508
  Receipt Date: 20250714
  Transmission Date: 20251020
  Serious: No
  Sender: SANOFI AVENTIS
  Company Number: US-SA-SAC20240429001770

PATIENT
  Age: 54 Year
  Sex: Female
  Weight: 88.435 kg

DRUGS (1)
  1. DUPIXENT [Suspect]
     Active Substance: DUPILUMAB
     Indication: Dermatitis atopic
     Dosage: 300 MG, QOW
     Route: 058
     Dates: start: 202310

REACTIONS (2)
  - Erythema [Unknown]
  - Therapeutic product effect decreased [Unknown]
